FAERS Safety Report 18446238 (Version 1)
Quarter: 2020Q4

REPORT INFORMATION
  Report Type: Spontaneous
  Country: US (occurrence: US)
  Receive Date: 20201030
  Receipt Date: 20201030
  Transmission Date: 20210114
  Serious: Yes (Death)
  Sender: FDA-Public Use
  Company Number: None

PATIENT
  Sex: Female

DRUGS (1)
  1. DOFETILIDE 125MCG [Suspect]
     Active Substance: DOFETILIDE
     Route: 048
     Dates: start: 20180313, end: 202008

REACTIONS (1)
  - Death [None]
